FAERS Safety Report 12299277 (Version 1)
Quarter: 2016Q2

REPORT INFORMATION
  Report Type: Spontaneous
  Country: US (occurrence: None)
  Receive Date: 20160422
  Receipt Date: 20160422
  Transmission Date: 20160815
  Serious: Yes (Life-Threatening, Hospitalization)
  Sender: FDA-Public Use
  Company Number: None

PATIENT
  Age: 77 Year
  Sex: Male
  Weight: 96.4 kg

DRUGS (1)
  1. ISOVUE [Suspect]
     Active Substance: IOPAMIDOL
     Dosage: ONCE IV PUSH
     Route: 042
     Dates: start: 20151028

REACTIONS (4)
  - Bradycardia [None]
  - Urticaria [None]
  - Blood pressure increased [None]
  - Atrioventricular block second degree [None]

NARRATIVE: CASE EVENT DATE: 20151028
